FAERS Safety Report 11401947 (Version 1)
Quarter: 2015Q3

REPORT INFORMATION
  Report Type: Spontaneous
  Country: US (occurrence: US)
  Receive Date: 20150821
  Receipt Date: 20150821
  Transmission Date: 20151125
  Serious: No
  Sender: FDA-Public Use
  Company Number: US-DRREDDYS-USA/USA/14/0044898

PATIENT
  Age: 58 Year
  Sex: Male

DRUGS (1)
  1. TIZANIDINE HYDROCHLORIDE. [Suspect]
     Active Substance: TIZANIDINE HYDROCHLORIDE
     Indication: MUSCLE SPASMS
     Route: 048

REACTIONS (4)
  - Somnolence [Recovering/Resolving]
  - Drug intolerance [Unknown]
  - Drug ineffective [Unknown]
  - Product quality issue [Unknown]
